FAERS Safety Report 7964482-0 (Version None)
Quarter: 2011Q4

REPORT INFORMATION
  Report Type: 
  Country: None (occurrence: None)
  Receive Date: 20111208
  Receipt Date: 20111203
  Transmission Date: 20120403
  Serious: No
  Sender: FDA-Public Use
  Company Number: US-B.I. PHARMACEUTICALS,INC./RIDGEFIELD-2011-BP-27380BP

PATIENT
  Age: 52 Year
  Sex: Female

DRUGS (3)
  1. BACTRIM [Suspect]
     Indication: PNEUMONIA
     Dates: start: 20111126
  2. PREDNISONE TAB [Suspect]
  3. PRADAXA [Suspect]
     Indication: SARCOIDOSIS
     Dates: start: 20111103

REACTIONS (4)
  - RASH [None]
  - BLOOD GLUCOSE INCREASED [None]
  - PARAESTHESIA ORAL [None]
  - PNEUMONIA [None]
